FAERS Safety Report 7432761 (Version 1)
Quarter: 2020Q3

REPORT INFORMATION
  Report Type: Spontaneous
  Country: US (occurrence: US)
  Receive Date: 20100624
  Receipt Date: 20100624
  Transmission Date: 20201104
  Serious: Yes (Other)
  Sender: FDA-Public Use
  Company Number: GXKR2010US06585

PATIENT
  Age: 77 Year
  Sex: Female

DRUGS (2)
  1. ALENDRONIC ACID [Suspect]
     Active Substance: ALENDRONIC ACID
     Route: 048
  2. IBANDRONIC ACID. [Suspect]
     Active Substance: IBANDRONIC ACID
     Route: 048

REACTIONS (6)
  - Asthenia [Unknown]
  - Pain in extremity [Unknown]
  - Fall [Unknown]
  - Open reduction of fracture [Unknown]
  - Femur fracture [Unknown]
  - Arthralgia [Unknown]
